FAERS Safety Report 24232871 (Version 1)
Quarter: 2024Q3

REPORT INFORMATION
  Report Type: Spontaneous
  Country: US (occurrence: None)
  Receive Date: 20240820
  Receipt Date: 20240820
  Transmission Date: 20241017
  Serious: Yes (Other)
  Sender: Public
  Company Number: None

PATIENT
  Age: 45 Year
  Sex: 0
  Weight: 82.6 kg

DRUGS (1)
  1. FERRLECIT [Suspect]
     Active Substance: SODIUM FERRIC GLUCONATE COMPLEX
     Route: 042
     Dates: start: 20240816, end: 20240816

REACTIONS (4)
  - Hypersensitivity [None]
  - Infusion related reaction [None]
  - Tongue pruritus [None]
  - Throat irritation [None]

NARRATIVE: CASE EVENT DATE: 20240816
